FAERS Safety Report 10310475 (Version 1)
Quarter: 2014Q3

REPORT INFORMATION
  Report Type: Spontaneous
  Country: US (occurrence: None)
  Receive Date: 20140715
  Receipt Date: 20140715
  Transmission Date: 20150326
  Serious: Yes (Other)
  Sender: FDA-Public Use
  Company Number: AUR-APL-2014-07306

PATIENT
  Age: 57 Year
  Sex: Female
  Weight: 53.5 kg

DRUGS (8)
  1. KLONOPIN (CLONAZEPAM) [Concomitant]
  2. LEVOTHYROXINE (LEVOTHYROXINE) [Concomitant]
     Active Substance: LEVOTHYROXINE
  3. CELEBREX [Suspect]
     Active Substance: CELECOXIB
     Indication: COLLAGEN DISORDER
     Dosage: 200MG, ONCE A DAY, ORAL
     Route: 048
     Dates: start: 2001
  4. FLUOXETINE [Suspect]
     Active Substance: FLUOXETINE\FLUOXETINE HYDROCHLORIDE
     Indication: DEPRESSION
     Dosage: 60MG, ONCE A DAY, ORAL
     Route: 048
     Dates: start: 201308
  5. LYRICA [Suspect]
     Active Substance: PREGABALIN
     Indication: FIBROMYALGIA
     Route: 048
     Dates: start: 2010
  6. CELEBREX [Suspect]
     Active Substance: CELECOXIB
     Indication: OSTEOARTHRITIS
     Dosage: 200MG, ONCE A DAY, ORAL
     Route: 048
     Dates: start: 2001
  7. TRAMADOL (TRAMADOL) [Concomitant]
     Active Substance: TRAMADOL
  8. LISINOPRIL (LISINOPRIL) [Concomitant]
     Active Substance: LISINOPRIL

REACTIONS (3)
  - Weight decreased [None]
  - Pain [None]
  - Incorrect dose administered [None]

NARRATIVE: CASE EVENT DATE: 2013
